FAERS Safety Report 16862536 (Version 3)
Quarter: 2019Q4

REPORT INFORMATION
  Report Type: Spontaneous
  Country: JP (occurrence: JP)
  Receive Date: 20190927
  Receipt Date: 20191004
  Transmission Date: 20200122
  Serious: Yes (Hospitalization)
  Sender: FDA-Public Use
  Company Number: JP-ELI_LILLY_AND_COMPANY-JP201909012385

PATIENT
  Age: 75 Year

DRUGS (1)
  1. CYRAMZA [Suspect]
     Active Substance: RAMUCIRUMAB
     Indication: HEPATOCELLULAR CARCINOMA
     Dosage: UNK UNK, CYCLICAL
     Route: 041
     Dates: start: 20190903, end: 20190917

REACTIONS (1)
  - Hepatic encephalopathy [Recovered/Resolved]

NARRATIVE: CASE EVENT DATE: 20190924
